FAERS Safety Report 10494167 (Version 1)
Quarter: 2014Q4

REPORT INFORMATION
  Report Type: Spontaneous
  Country: US (occurrence: US)
  Receive Date: 20141003
  Receipt Date: 20141003
  Transmission Date: 20150528
  Serious: No
  Sender: FDA-Public Use
  Company Number: US-009507513-1409USA009477

PATIENT

DRUGS (1)
  1. ASMANEX [Suspect]
     Active Substance: MOMETASONE FUROATE
     Dosage: 2 INHALATIONS TWICE DAILY
     Route: 055

REACTIONS (4)
  - Drug dose omission [Unknown]
  - Product quality issue [Unknown]
  - Wrong technique in drug usage process [Unknown]
  - No adverse event [Unknown]
